FAERS Safety Report 4398325-1 (Version None)
Quarter: 2004Q3

REPORT INFORMATION
  Report Type: 
  Country: None (occurrence: None)
  Receive Date: 20040712
  Receipt Date: 20040701
  Transmission Date: 20050211
  Serious: Yes (Other)
  Sender: FDA-Public Use
  Company Number: 2004004271

PATIENT
  Age: 83 Year
  Sex: Male

DRUGS (3)
  1. GEMFIBROZIL [Suspect]
     Indication: HYPERCHOLESTEROLAEMIA
     Dates: end: 20040101
  2. AMLODIPINE BESYLATE [Concomitant]
  3. BENAZEPRIL HCL [Concomitant]

REACTIONS (1)
  - RENAL FAILURE [None]
